FAERS Safety Report 4517738-8 (Version None)
Quarter: 2004Q4

REPORT INFORMATION
  Report Type: 
  Country: None (occurrence: None)
  Receive Date: 20041201
  Receipt Date: 20041201
  Transmission Date: 20050328
  Serious: Yes (Life-Threatening, Hospitalization)
  Sender: FDA-Public Use
  Company Number: None

PATIENT
  Sex: Female
  Weight: 74.3899 kg

DRUGS (6)
  1. VIOXX [Suspect]
     Indication: OSTEOARTHRITIS
     Dosage: 12.5 MG PO QD
     Route: 048
     Dates: start: 20031029, end: 20040901
  2. SYNTHROID [Concomitant]
  3. VASOTEC [Concomitant]
  4. PROTONIX [Concomitant]
  5. LASIX [Concomitant]
  6. AMIODARONE HCL [Concomitant]

REACTIONS (4)
  - ACUTE MYOCARDIAL INFARCTION [None]
  - CARDIAC FAILURE CONGESTIVE [None]
  - PNEUMONIA [None]
  - RESPIRATORY FAILURE [None]
